FAERS Safety Report 18332572 (Version 1)
Quarter: 2020Q3

REPORT INFORMATION
  Report Type: Report from Study
  Country: AU (occurrence: AU)
  Receive Date: 20200930
  Receipt Date: 20200930
  Transmission Date: 20201103
  Serious: Yes (Hospitalization)
  Sender: FDA-Public Use
  Company Number: AU-009507513-2009AUS007349

PATIENT
  Age: 79 Year
  Sex: Male

DRUGS (12)
  1. PAVTIDE DISKUS [Concomitant]
     Indication: CHRONIC OBSTRUCTIVE PULMONARY DISEASE
     Dosage: DOSE:4 PUFFS;FORMULATION: PUFFER
     Dates: start: 2017
  2. PEMBROLIZUMAB. [Suspect]
     Active Substance: PEMBROLIZUMAB
     Dosage: UNK
     Dates: start: 202009, end: 20200923
  3. PALONOSETRON HYDROCHLORIDE. [Suspect]
     Active Substance: PALONOSETRON HYDROCHLORIDE
     Indication: CHEMOTHERAPY SIDE EFFECT PROPHYLAXIS
     Dosage: DOSE: 0.25 MG
     Route: 042
     Dates: start: 20200825, end: 20200923
  4. PEMBROLIZUMAB. [Suspect]
     Active Substance: PEMBROLIZUMAB
     Indication: BLADDER CANCER
     Dosage: UNK
     Dates: start: 20200825, end: 20200916
  5. CISPLATIN. [Suspect]
     Active Substance: CISPLATIN
     Indication: BLADDER CANCER
     Dosage: UNK
     Dates: start: 20200825, end: 20200916
  6. OMEPRAZOLE. [Concomitant]
     Active Substance: OMEPRAZOLE
     Indication: GASTROOESOPHAGEAL REFLUX DISEASE
     Dosage: 20 MILLIGRAM
     Route: 048
     Dates: start: 2013
  7. TAMSULOSIN HYDROCHLORIDE. [Concomitant]
     Active Substance: TAMSULOSIN HYDROCHLORIDE
     Indication: BENIGN PROSTATIC HYPERPLASIA
     Dosage: DOSE: 500/400 MICROGRAM
     Route: 048
     Dates: start: 2013
  8. AMLODIPINE BESYLATE (+) HYDROCHLOROTHIAZIDE (+) VALSARTAN [Concomitant]
     Indication: HYPERTENSION
     Dosage: DOSE: 5/160/12.5 MG
     Route: 048
     Dates: start: 2016, end: 20200916
  9. MIRTAZAPINE. [Suspect]
     Active Substance: MIRTAZAPINE
     Indication: BIPOLAR DISORDER
     Dosage: DOSE: 30 MILLIGRAM
     Route: 048
     Dates: start: 2010, end: 20200923
  10. SILODOSIN. [Concomitant]
     Active Substance: SILODOSIN
     Indication: BENIGN PROSTATIC HYPERPLASIA
     Dosage: 8 MILLIGRAM
     Route: 048
     Dates: start: 20200914
  11. DEXAMETHASONE. [Concomitant]
     Active Substance: DEXAMETHASONE
     Indication: CHEMOTHERAPY SIDE EFFECT PROPHYLAXIS
     Dosage: DOSE: 4 MILLIGRAM
     Route: 048
     Dates: start: 20200825
  12. CISPLATIN. [Suspect]
     Active Substance: CISPLATIN
     Dosage: UNK
     Dates: start: 202009, end: 20200923

REACTIONS (5)
  - Tachycardia [Recovered/Resolved]
  - Muscle spasticity [Recovered/Resolved]
  - Chills [Recovered/Resolved]
  - Pyrexia [Recovered/Resolved]
  - Serotonin syndrome [Recovered/Resolved]

NARRATIVE: CASE EVENT DATE: 20200917
